FAERS Safety Report 13898946 (Version 1)
Quarter: 2017Q3

REPORT INFORMATION
  Report Type: Spontaneous
  Country: US (occurrence: US)
  Receive Date: 20170823
  Receipt Date: 20170823
  Transmission Date: 20171127
  Serious: No
  Sender: FDA-Public Use
  Company Number: US-JAZZ-2017-US-007284

PATIENT
  Sex: Female

DRUGS (27)
  1. XYREM [Suspect]
     Active Substance: SODIUM OXYBATE
     Dosage: 2.25G, BID
     Route: 048
     Dates: start: 201402, end: 2014
  2. XYREM [Suspect]
     Active Substance: SODIUM OXYBATE
     Dosage: DOSE ADJUSTMENT
     Route: 048
     Dates: start: 201603, end: 201612
  3. DEXTROAMPHETAMINE                  /00016601/ [Concomitant]
     Active Substance: DEXTROAMPHETAMINE
  4. XANAX [Concomitant]
     Active Substance: ALPRAZOLAM
  5. LEXAPRO [Concomitant]
     Active Substance: ESCITALOPRAM OXALATE
  6. XYREM [Suspect]
     Active Substance: SODIUM OXYBATE
     Indication: NARCOLEPSY
     Dosage: 2.25 G, BID
     Route: 048
     Dates: start: 201307, end: 2013
  7. XYREM [Suspect]
     Active Substance: SODIUM OXYBATE
     Dosage: 3.75G, BID
     Route: 048
     Dates: start: 201401, end: 201402
  8. XYREM [Suspect]
     Active Substance: SODIUM OXYBATE
     Dosage: 3.75 G, BID
     Route: 048
     Dates: start: 201612
  9. CLOBETASOL [Concomitant]
     Active Substance: CLOBETASOL
  10. SYNTHROID [Concomitant]
     Active Substance: LEVOTHYROXINE SODIUM
  11. MICROGESTIN FE [Concomitant]
     Active Substance: ETHINYL ESTRADIOL\FERROUS FUMARATE\NORETHINDRONE ACETATE
  12. EFFEXOR [Concomitant]
     Active Substance: VENLAFAXINE HYDROCHLORIDE
  13. IBUPROFEN. [Concomitant]
     Active Substance: IBUPROFEN
  14. DEXEDRINE [Concomitant]
     Active Substance: DEXTROAMPHETAMINE SULFATE
  15. ZETONNA [Concomitant]
     Active Substance: CICLESONIDE
  16. MEDROL [Concomitant]
     Active Substance: METHYLPREDNISOLONE
  17. CLARITIN [Concomitant]
     Active Substance: LORATADINE
  18. ALLEGRA ALLERGY [Concomitant]
     Active Substance: FEXOFENADINE HYDROCHLORIDE
  19. REMICADE [Concomitant]
     Active Substance: INFLIXIMAB
  20. FIORICET [Concomitant]
     Active Substance: ACETAMINOPHEN\BUTALBITAL\CAFFEINE
  21. UCERIS [Concomitant]
     Active Substance: BUDESONIDE
  22. METHYLPHENIDATE. [Concomitant]
     Active Substance: METHYLPHENIDATE
  23. ALPRAZOLAM. [Concomitant]
     Active Substance: ALPRAZOLAM
  24. DEXILANT [Concomitant]
     Active Substance: DEXLANSOPRAZOLE
  25. SUDAFED [Concomitant]
     Active Substance: PSEUDOEPHEDRINE HYDROCHLORIDE
  26. XYREM [Suspect]
     Active Substance: SODIUM OXYBATE
     Dosage: 2.25 G, BID
     Route: 048
     Dates: start: 201602, end: 201603
  27. APRISO [Concomitant]
     Active Substance: MESALAMINE

REACTIONS (1)
  - Extra dose administered [Unknown]
